FAERS Safety Report 4789178-8 (Version None)
Quarter: 2005Q4

REPORT INFORMATION
  Report Type: 
  Country: None (occurrence: None)
  Receive Date: 20051003
  Receipt Date: 20050815
  Transmission Date: 20060501
  Serious: No
  Sender: FDA-Public Use
  Company Number: SU-2005-003369

PATIENT
  Age: 53 Year
  Sex: Female
  Weight: 74.1631 kg

DRUGS (2)
  1. BENICAR HCT [Suspect]
     Indication: HYPERTENSION
     Dosage: 40.25 MG QD PO
     Route: 048
     Dates: start: 20041217, end: 20050321
  2. ZYRTEC-D 12 HOUR [Concomitant]

REACTIONS (4)
  - COUGH [None]
  - HYPERSENSITIVITY [None]
  - HYPERTENSION [None]
  - NAUSEA [None]
